FAERS Safety Report 8732923 (Version 3)
Quarter: 2012Q4

REPORT INFORMATION
  Report Type: 
  Country: US (occurrence: US)
  Receive Date: 20120820
  Receipt Date: 20121107
  Transmission Date: 20130627
  Serious: Yes (Death, Hospitalization, Other)
  Sender: FDA-Public Use
  Company Number: US-ELI_LILLY_AND_COMPANY-US201205007998

PATIENT
  Sex: Male
  Weight: 71 kg

DRUGS (8)
  1. GEMZAR [Suspect]
     Indication: PANCREATIC CARCINOMA
     Dosage: 1800 mg, single
     Route: 042
     Dates: start: 20120307
  2. CITALOPRAM [Concomitant]
     Dosage: 20 mg, qd
     Route: 048
  3. LORAZEPAM [Concomitant]
     Dosage: 1 mg, bid
     Route: 048
  4. MIRTAZAPINE [Concomitant]
     Dosage: 30 mg, each evening
     Route: 048
  5. MIRALAX [Concomitant]
     Dosage: UNK, prn
  6. OMEPRAZOLE [Concomitant]
     Dosage: ^20 mg, bid
     Route: 048
  7. OXYCONTIN [Concomitant]
     Dosage: 40 mg, bid
     Route: 048
  8. OXYCODONE [Concomitant]
     Dosage: 5 mg, prn
     Route: 048

REACTIONS (8)
  - Neoplasm progression [Fatal]
  - Fall [Unknown]
  - Hip fracture [Unknown]
  - Upper gastrointestinal haemorrhage [Unknown]
  - Joint swelling [Unknown]
  - Oedema peripheral [Unknown]
  - Decreased appetite [Unknown]
  - Anaemia [Unknown]
